FAERS Safety Report 6335542-5 (Version None)
Quarter: 2009Q3

REPORT INFORMATION
  Report Type: 
  Country: None (occurrence: None)
  Receive Date: 20090831
  Receipt Date: 20090826
  Transmission Date: 20100115
  Serious: Yes (Death, Life-Threatening)
  Sender: FDA-Public Use
  Company Number: JP-ASTRAZENECA-2009SE10073

PATIENT
  Age: 38 Year
  Sex: Female

DRUGS (9)
  1. DIPRIVAN [Suspect]
     Indication: SEDATION
     Dosage: 6MG/KG/HOUR
     Route: 042
  2. MIDAZOLAM HCL [Concomitant]
     Dosage: 0.3MG/KG/HOUR
     Route: 042
  3. THIOPENTAL SODIUM [Concomitant]
     Indication: SEDATION
     Dosage: 5MG/KG/HOUR
     Route: 042
  4. ACYCLOVIR [Concomitant]
     Dosage: DOSE UNKNOWN
     Route: 065
  5. CEFTRIAXONE SODIUM [Concomitant]
     Dosage: DOSE UNKNOWN
     Route: 042
  6. AMOXICILLIN [Concomitant]
     Dosage: DOSE UNKNOWN
     Route: 065
  7. RIFAMPICIN AND PREPARATIONS [Concomitant]
     Dosage: DOSE UNKNOWN
     Route: 065
  8. INTERFERON BETA [Concomitant]
     Dosage: DOSE UNKNOWN
     Route: 065
  9. PYRAZINAMIDE AND PREPARATIONS [Concomitant]
     Dosage: DOSE UNKNOWN
     Route: 065

REACTIONS (6)
  - BLOOD CREATINE PHOSPHOKINASE INCREASED [None]
  - BLOOD PRESSURE DECREASED [None]
  - BRADYCARDIA [None]
  - HYPOPHOSPHATAEMIA [None]
  - METABOLIC ACIDOSIS [None]
  - URINE OUTPUT DECREASED [None]
